FAERS Safety Report 13471988 (Version 2)
Quarter: 2017Q2

REPORT INFORMATION
  Report Type: Spontaneous
  Country: US (occurrence: US)
  Receive Date: 20170424
  Receipt Date: 20170427
  Transmission Date: 20170830
  Serious: No
  Sender: FDA-Public Use
  Company Number: US-BAYER-2017-077766

PATIENT

DRUGS (2)
  1. CLARITIN-D 24 HOUR [Suspect]
     Active Substance: LORATADINE\PSEUDOEPHEDRINE SULFATE
     Dosage: UNK
  2. TYLENOL SINUS SEVERE CONGESTION [Concomitant]
     Indication: SINUS PAIN
     Dosage: UNK

REACTIONS (1)
  - Therapeutic response unexpected [Unknown]
